FAERS Safety Report 6811944-5 (Version None)
Quarter: 2010Q3

REPORT INFORMATION
  Report Type: 
  Country: None (occurrence: None)
  Receive Date: 20100701
  Receipt Date: 20100623
  Transmission Date: 20110219
  Serious: Yes (Hospitalization, Disabling, Other)
  Sender: FDA-Public Use
  Company Number: BR-BAYER-BR-2007-012600

PATIENT
  Age: 44 Year
  Sex: Female

DRUGS (10)
  1. BETAFERON [Suspect]
     Indication: MULTIPLE SCLEROSIS
     Dosage: TOTAL DAILY DOSE: 8 MIU
     Route: 058
     Dates: start: 20000101
  2. METHADONE HYDROCHLORIDE [Concomitant]
     Dosage: 1 TAB(S), 2X/DAY [DAILY DOSE: 2 TAB(S)]
     Route: 048
  3. DIAZEPAM [Concomitant]
     Indication: DEPRESSION
     Dosage: 1 TAB(S), 3X/DAY [DAILY DOSE: 3 TAB(S)]
     Route: 048
     Dates: start: 19940101
  4. FLUOXETINE [Concomitant]
     Indication: DEPRESSION
     Dosage: 1 TAB(S), 3X/DAY [DAILY DOSE: 3 TAB(S)]
     Route: 048
     Dates: start: 19990101
  5. BACLOFEN [Concomitant]
     Indication: MUSCLE SPASMS
     Dosage: 3 TABLETS / DAY
     Route: 048
     Dates: start: 19990101
  6. METADON [Concomitant]
     Indication: PAIN
     Route: 048
     Dates: start: 20010101
  7. TEGRETOL [Concomitant]
     Indication: DEPRESSION
     Dosage: 1 TABLET AT NIGHT
     Route: 048
     Dates: start: 20090201
  8. AMPLICTIL [Concomitant]
     Indication: MUSCLE RELAXANT THERAPY
     Dosage: 1 TABLET AT NIGHT
     Route: 048
     Dates: start: 20090401
  9. DIAZEPAM [Concomitant]
     Route: 048
     Dates: start: 19940101
  10. TRAMAL [Concomitant]
     Indication: BACK PAIN
     Dosage: 3 TABLETS / DAY
     Route: 048
     Dates: start: 20080101

REACTIONS (21)
  - ABASIA [None]
  - ARTHRALGIA [None]
  - COORDINATION ABNORMAL [None]
  - DECREASED APPETITE [None]
  - DEPRESSED MOOD [None]
  - DEPRESSION [None]
  - FAECAL INCONTINENCE [None]
  - FATIGUE [None]
  - HYPOAESTHESIA [None]
  - IRRITABILITY [None]
  - MOTOR DYSFUNCTION [None]
  - MOVEMENT DISORDER [None]
  - MULTIPLE SCLEROSIS [None]
  - MULTIPLE SCLEROSIS RELAPSE [None]
  - MUSCLE SPASMS [None]
  - NECK PAIN [None]
  - PAIN IN EXTREMITY [None]
  - PNEUMONIA [None]
  - QUADRIPARESIS [None]
  - SUICIDAL IDEATION [None]
  - URINARY INCONTINENCE [None]
